FAERS Safety Report 14425145 (Version 2)
Quarter: 2018Q2

REPORT INFORMATION
  Report Type: Spontaneous
  Country: SE (occurrence: SE)
  Receive Date: 20180123
  Receipt Date: 20180622
  Transmission Date: 20180711
  Serious: Yes (Hospitalization, Other)
  Sender: FDA-Public Use
  Company Number: SE-BRACCO-2018SE00239

PATIENT
  Age: 48 Year
  Sex: Female

DRUGS (5)
  1. ESMYA [Concomitant]
     Active Substance: ULIPRISTAL ACETATE
     Dosage: ()
  2. SALT SOLUTIONS [Concomitant]
     Dosage: UNK
     Route: 042
     Dates: start: 20180109, end: 20180109
  3. SELOKEN                            /00376902/ [Concomitant]
     Active Substance: METOPROLOL TARTRATE
  4. SONOVUE [Suspect]
     Active Substance: SULFUR HEXAFLUORIDE
     Indication: ULTRASOUND LIVER
     Dosage: 2 ML, 8 MICROLITER/ML
     Route: 042
     Dates: start: 20180109, end: 20180109
  5. SELOKEN [Concomitant]
     Active Substance: METOPROLOL
     Dosage: ()

REACTIONS (1)
  - Drug effect prolonged [Recovered/Resolved]

NARRATIVE: CASE EVENT DATE: 20180109
